FAERS Safety Report 16980020 (Version 13)
Quarter: 2020Q4

REPORT INFORMATION
  Report Type: Spontaneous
  Country: CA (occurrence: CA)
  Receive Date: 20191031
  Receipt Date: 20201123
  Transmission Date: 20210113
  Serious: Yes (Other)
  Sender: FDA-Public Use
  Company Number: CA-CELLTRION INC.-2019CA024154

PATIENT

DRUGS (11)
  1. INFLECTRA [Suspect]
     Active Substance: INFLIXIMAB-DYYB
     Dosage: 300MG AT WEEK 0, 2, 6, THEN EVERY 8 WEEKS
     Route: 042
     Dates: start: 20190829
  2. INFLECTRA [Suspect]
     Active Substance: INFLIXIMAB-DYYB
     Dosage: 300 MG,  (AT WEEK 0,2,6 THE EVERY 8 WEEKS)
     Route: 042
     Dates: start: 20190924
  3. INFLECTRA [Suspect]
     Active Substance: INFLIXIMAB-DYYB
     Dosage: 300 MG,  (AT WEEK 0,2,6 THE EVERY 8 WEEKS)
     Route: 042
     Dates: start: 20200115
  4. INFLECTRA [Suspect]
     Active Substance: INFLIXIMAB-DYYB
     Dosage: 300 MG, (AT WEEK 0,2,6 THE EVERY 8 WEEKS)
     Route: 042
     Dates: start: 20190813
  5. INFLECTRA [Suspect]
     Active Substance: INFLIXIMAB-DYYB
     Dosage: 300 MG,  (AT WEEK 0,2,6 THE EVERY 8 WEEKS)
     Route: 042
     Dates: start: 20200311
  6. INFLECTRA [Suspect]
     Active Substance: INFLIXIMAB-DYYB
     Dosage: 300 MG,  (AT WEEK 0,2,6 THE EVERY 8 WEEKS)
     Route: 042
     Dates: start: 20200624, end: 20200624
  7. PREDNISONE. [Concomitant]
     Active Substance: PREDNISONE
     Dosage: 40 MG, 1X/DAY
     Route: 048
  8. INFLECTRA [Suspect]
     Active Substance: INFLIXIMAB-DYYB
     Dosage: 300 MG, (AT WEEK 0,2,6 THE EVERY 8 WEEKS)
     Route: 042
     Dates: start: 20190924
  9. INFLECTRA [Suspect]
     Active Substance: INFLIXIMAB-DYYB
     Dosage: 300 MG,  (AT WEEK 0,2,6 THE EVERY 8 WEEKS)
     Route: 042
     Dates: start: 20191120
  10. INFLECTRA [Suspect]
     Active Substance: INFLIXIMAB-DYYB
     Indication: CROHN^S DISEASE
     Dosage: 300 MG, UNK
     Route: 042
     Dates: start: 20190813
  11. PREDNISONE. [Concomitant]
     Active Substance: PREDNISONE
     Dosage: 5 MG, 1X/DAY (TAPERING)
     Route: 048

REACTIONS (19)
  - Diabetes mellitus [Unknown]
  - Vomiting [Unknown]
  - White blood cell count increased [Unknown]
  - Off label use [Unknown]
  - Intentional product use issue [Unknown]
  - Pneumonia [Unknown]
  - Gait disturbance [Not Recovered/Not Resolved]
  - Malaise [Unknown]
  - Migraine [Unknown]
  - Pyrexia [Unknown]
  - Nasopharyngitis [Unknown]
  - Muscle spasms [Unknown]
  - Bone cancer [Unknown]
  - Cough [Unknown]
  - Blood pressure systolic increased [Unknown]
  - Fatigue [Unknown]
  - Insomnia [Unknown]
  - Vision blurred [Unknown]
  - Nausea [Not Recovered/Not Resolved]

NARRATIVE: CASE EVENT DATE: 20190924
